FAERS Safety Report 16458346 (Version 3)
Quarter: 2019Q3

REPORT INFORMATION
  Report Type: Spontaneous
  Country: US (occurrence: US)
  Receive Date: 20190620
  Receipt Date: 20190722
  Transmission Date: 20191004
  Serious: Yes (Other)
  Sender: FDA-Public Use
  Company Number: US-EISAI MEDICAL RESEARCH-EC-2019-057817

PATIENT
  Age: 51 Year
  Sex: Male
  Weight: 76 kg

DRUGS (2)
  1. BANZEL [Suspect]
     Active Substance: RUFINAMIDE
     Indication: EPILEPSY
     Dosage: FREQUENCY UNKNOWN
     Route: 048
     Dates: start: 20180514, end: 201805
  2. BANZEL [Suspect]
     Active Substance: RUFINAMIDE
     Route: 048
     Dates: start: 201805, end: 20180517

REACTIONS (8)
  - Pain [Unknown]
  - Arthralgia [Recovered/Resolved]
  - Sensory disturbance [Recovered/Resolved]
  - Pruritus [Recovered/Resolved]
  - Eye swelling [Unknown]
  - Delusion [Unknown]
  - Migraine [Recovered/Resolved]
  - Depression [Unknown]

NARRATIVE: CASE EVENT DATE: 201805
